FAERS Safety Report 6744966-3 (Version None)
Quarter: 2010Q2

REPORT INFORMATION
  Report Type: 
  Country: None (occurrence: None)
  Receive Date: 20100527
  Receipt Date: 20100519
  Transmission Date: 20101027
  Serious: Yes (Hospitalization)
  Sender: FDA-Public Use
  Company Number: JP-AMGEN-QUU409766

PATIENT
  Sex: Male

DRUGS (14)
  1. ENBREL [Suspect]
     Indication: RHEUMATOID ARTHRITIS
     Route: 058
     Dates: start: 20090626, end: 20090807
  2. ENBREL [Suspect]
     Route: 058
     Dates: start: 20090925
  3. PREDONINE [Suspect]
     Route: 048
  4. RHEUMATREX [Suspect]
     Route: 048
     Dates: end: 20090904
  5. RHEUMATREX [Suspect]
     Dosage: UNKNOWN
     Route: 048
     Dates: start: 20090918
  6. FOLIAMIN [Concomitant]
     Route: 048
  7. ISCOTIN [Concomitant]
     Route: 048
  8. MICARDIS [Concomitant]
     Route: 048
  9. MEVALOTIN [Concomitant]
     Route: 048
  10. MUCOSTA [Concomitant]
     Route: 048
  11. FAMOTIDINE [Concomitant]
     Route: 048
  12. EUGLUCON [Concomitant]
     Route: 048
  13. METFORMIN HYDROCHLORIDE [Concomitant]
     Dosage: 750 MG EVERY 1 DEC
     Route: 048
  14. ITOROL [Concomitant]
     Route: 048

REACTIONS (3)
  - FUNGAL INFECTION [None]
  - PNEUMOCYSTIS JIROVECI PNEUMONIA [None]
  - PNEUMONIA [None]
